FAERS Safety Report 16820943 (Version 2)
Quarter: 2020Q2

REPORT INFORMATION
  Report Type: Spontaneous
  Country: US (occurrence: US)
  Receive Date: 20190918
  Receipt Date: 20200414
  Transmission Date: 20200713
  Serious: Yes (Other)
  Sender: FDA-Public Use
  Company Number: US-ROCHE-2408940

PATIENT
  Age: 46 Year
  Sex: Male
  Weight: 72.96 kg

DRUGS (1)
  1. OCREVUS [Suspect]
     Active Substance: OCRELIZUMAB
     Indication: MULTIPLE SCLEROSIS
     Dosage: 600 MG ONCE IN 6 MONTH
     Route: 042
     Dates: start: 20190220

REACTIONS (5)
  - Malignant melanoma [Unknown]
  - Dysplastic naevus [Unknown]
  - Melanocytic naevus [Unknown]
  - Solar lentigo [Unknown]
  - Seborrhoeic keratosis [Unknown]

NARRATIVE: CASE EVENT DATE: 20190725
